APPROVED DRUG PRODUCT: NEFAZODONE HYDROCHLORIDE
Active Ingredient: NEFAZODONE HYDROCHLORIDE
Strength: 50MG
Dosage Form/Route: TABLET;ORAL
Application: A075763 | Product #001
Applicant: IVAX PHARMACEUTICALS INC SUB TEVA PHARMACEUTICALS USA
Approved: Sep 16, 2003 | RLD: No | RS: No | Type: DISCN